FAERS Safety Report 10172715 (Version 2)
Quarter: 2014Q2

REPORT INFORMATION
  Report Type: Spontaneous
  Country: US (occurrence: US)
  Receive Date: 20140515
  Receipt Date: 20140515
  Transmission Date: 20141212
  Serious: No
  Sender: FDA-Public Use
  Company Number: US-MYLANLABS-2013S1013059

PATIENT
  Age: 72 Year
  Sex: Female
  Weight: 65.77 kg

DRUGS (7)
  1. RIMSO-50 (DIMETHYL SULFOXIDE IRRIGATION USP) [Suspect]
     Indication: BLADDER SPASM
     Dosage: WEEKLY FOR 3-4 WEEKS THEN MONTHLY EVERY 3-4 MONTHS, THEN DISCONTINUED
     Route: 026
     Dates: start: 201111
  2. RIMSO-50 (DIMETHYL SULFOXIDE IRRIGATION USP) [Suspect]
     Indication: BLADDER PAIN
     Dosage: WEEKLY FOR 3-4 WEEKS THEN MONTHLY EVERY 3-4 MONTHS, THEN DISCONTINUED
     Route: 026
     Dates: start: 201111
  3. RIMSO-50 (DIMETHYL SULFOXIDE IRRIGATION USP) [Suspect]
     Indication: OFF LABEL USE
     Dosage: WEEKLY FOR 3-4 WEEKS THEN MONTHLY EVERY 3-4 MONTHS, THEN DISCONTINUED
     Route: 026
     Dates: start: 201111
  4. LIDOCAINE [Suspect]
     Indication: BLADDER SPASM
     Route: 026
     Dates: start: 201111
  5. LIDOCAINE [Suspect]
     Indication: BLADDER PAIN
     Route: 026
     Dates: start: 201111
  6. ELAVIL /00002202/ [Concomitant]
     Indication: DEPRESSION
     Route: 048
     Dates: start: 201305
  7. AZO [Concomitant]
     Indication: BLADDER PAIN
     Route: 048

REACTIONS (1)
  - Chromaturia [Not Recovered/Not Resolved]
